FAERS Safety Report 4262985-6 (Version None)
Quarter: 2004Q1

REPORT INFORMATION
  Report Type: 
  Country: None (occurrence: None)
  Receive Date: 20040102
  Receipt Date: 20040102
  Transmission Date: 20041129
  Serious: Yes (Hospitalization)
  Sender: FDA-Public Use
  Company Number: None

PATIENT
  Sex: Male
  Weight: 46 kg

DRUGS (13)
  1. SEPTRA [Suspect]
     Indication: PNEUMOCYSTIS CARINII PNEUMONIA
     Dosage: 350 MG Q 8 HOURS
     Dates: start: 20031217, end: 20031220
  2. SEPTRA [Suspect]
     Indication: PNEUMOCYSTIS CARINII PNEUMONIA
     Dosage: 350 MG Q 8 HOURS
     Dates: start: 20031226, end: 20031229
  3. AZITHROMYCIN [Concomitant]
  4. METHADONE HCL [Concomitant]
  5. PREDNISONE [Concomitant]
  6. FOLIC ACID [Concomitant]
  7. THIAMINE [Concomitant]
  8. PROTONIX [Concomitant]
  9. ACETAMINOPHEN [Concomitant]
  10. VORICONAZOLE [Concomitant]
  11. LEVOFLOXACIN [Concomitant]
  12. ZOSYN [Concomitant]
  13. IMIPENEM [Concomitant]

REACTIONS (1)
  - PANCYTOPENIA [None]
